FAERS Safety Report 11895164 (Version 1)
Quarter: 2016Q1

REPORT INFORMATION
  Report Type: Spontaneous
  Country: US (occurrence: None)
  Receive Date: 20160106
  Receipt Date: 20160106
  Transmission Date: 20160526
  Serious: No
  Sender: FDA-Public Use
  Company Number: None

PATIENT

DRUGS (1)
  1. LANTUS [Suspect]
     Active Substance: INSULIN GLARGINE
     Dosage: STRENGTH:  100 UNIT/ML
     Route: 058

REACTIONS (2)
  - Drug prescribing error [None]
  - Intercepted drug dispensing error [None]
